FAERS Safety Report 8395594-8 (Version None)
Quarter: 2012Q2

REPORT INFORMATION
  Report Type: 
  Country: None (occurrence: None)
  Receive Date: 20120530
  Receipt Date: 20111019
  Transmission Date: 20120825
  Serious: No
  Sender: FDA-Public Use
  Company Number: US-GLAXOSMITHKLINE-A0950075A

PATIENT
  Sex: Female

DRUGS (3)
  1. PROAIR HFA [Suspect]
     Route: 065
  2. PROVENTIL [Suspect]
     Dosage: 90MCG UNKNOWN
     Route: 055
  3. VENTOLIN [Suspect]
     Route: 065

REACTIONS (3)
  - DRUG INEFFECTIVE [None]
  - HEADACHE [None]
  - DYSPNOEA [None]
